FAERS Safety Report 9043425 (Version 1)
Quarter: 2013Q1

REPORT INFORMATION
  Report Type: Report from Study
  Country: US (occurrence: US)
  Receive Date: 20130129
  Receipt Date: 20130129
  Transmission Date: 20140127
  Serious: No
  Sender: FDA-Public Use
  Company Number: US-ABBOTT-12P-163-0909229-00

PATIENT
  Age: 15 None
  Sex: Female

DRUGS (5)
  1. HUMIRA 40 MG/ 0.8 ML PRE-FILLED SYRINGE [Suspect]
     Indication: CROHN^S DISEASE
     Dosage: LOADING DOSE
     Dates: start: 20120220, end: 20120220
  2. HUMIRA 40 MG/ 0.8 ML PRE-FILLED SYRINGE [Suspect]
     Dosage: SECOND LOADING DOSE TO GE GIVEN TODAY
  3. PREDNISONE [Concomitant]
     Indication: CROHN^S DISEASE
     Dates: start: 20120206
  4. PRILOSEC [Concomitant]
     Indication: GASTRITIS
  5. PRILOSEC [Concomitant]
     Indication: GASTROINTESTINAL INFLAMMATION

REACTIONS (2)
  - Diarrhoea [Unknown]
  - Pain [Recovering/Resolving]
